FAERS Safety Report 8582039-8 (Version None)
Quarter: 2012Q3

REPORT INFORMATION
  Report Type: 
  Country: None (occurrence: None)
  Receive Date: 20120809
  Receipt Date: 20120803
  Transmission Date: 20120928
  Serious: Yes (Other)
  Sender: FDA-Public Use
  Company Number: US-PFIZER INC-2012147467

PATIENT
  Age: 64 Year
  Sex: Female
  Weight: 72.562 kg

DRUGS (5)
  1. LYRICA [Suspect]
     Indication: CHRONIC FATIGUE SYNDROME
     Dosage: 75 MG, 2X/DAY
     Dates: start: 20070601
  2. VENLAFAXINE HCL [Suspect]
     Indication: FIBROMYALGIA
     Dosage: 75 MG, 2X/DAY
     Dates: start: 20070601
  3. VENLAFAXINE HCL [Suspect]
     Indication: CHRONIC FATIGUE SYNDROME
  4. LYRICA [Suspect]
     Indication: FIBROMYALGIA
     Dosage: 75 MG, 3X/DAY
     Dates: end: 20070601
  5. VENLAFAXINE HCL [Suspect]
     Indication: EMOTIONAL DISORDER
     Dosage: 75 MG, 3X/DAY
     Dates: end: 20070601

REACTIONS (6)
  - BREAST CANCER FEMALE [None]
  - PHARYNGEAL DISORDER [None]
  - PAIN [None]
  - GASTRIC DISORDER [None]
  - INAPPROPRIATE SCHEDULE OF DRUG ADMINISTRATION [None]
  - NAUSEA [None]
